FAERS Safety Report 23793090 (Version 1)
Quarter: 2024Q2

REPORT INFORMATION
  Report Type: Spontaneous
  Country: JP (occurrence: JP)
  Receive Date: 20240429
  Receipt Date: 20240429
  Transmission Date: 20240716
  Serious: Yes (Hospitalization, Other)
  Sender: FDA-Public Use
  Company Number: JP-ALKEM LABORATORIES LIMITED-AT-ALKEM-2023-03335

PATIENT
  Age: 87 Year
  Sex: Female

DRUGS (2)
  1. DABIGATRAN ETEXILATE MESYLATE [Suspect]
     Active Substance: DABIGATRAN ETEXILATE MESYLATE
     Indication: Atrial fibrillation
     Dosage: 110 MILLIGRAM, BID
     Route: 065
  2. DABIGATRAN ETEXILATE MESYLATE [Suspect]
     Active Substance: DABIGATRAN ETEXILATE MESYLATE
     Dosage: UNK,  RESTARTED DOSE (STARTED AGAIN 48H LATER)
     Route: 065

REACTIONS (3)
  - Traumatic intracranial haemorrhage [Recovered/Resolved]
  - Subdural haematoma [Recovered/Resolved]
  - Haemorrhage intracranial [Recovered/Resolved]
